FAERS Safety Report 7147873-X (Version None)
Quarter: 2010Q4

REPORT INFORMATION
  Report Type: 
  Country: None (occurrence: None)
  Receive Date: 20101209
  Receipt Date: 20101122
  Transmission Date: 20110411
  Serious: Yes (Hospitalization, Other)
  Sender: FDA-Public Use
  Company Number: ES-PFIZER INC-2010162788

PATIENT
  Age: 86 Year
  Sex: Female

DRUGS (4)
  1. TRANGOREX [Suspect]
     Indication: ATRIAL FIBRILLATION
     Dosage: UNK
     Route: 048
     Dates: start: 19850101, end: 20100101
  2. FUROSEMIDE [Concomitant]
     Dosage: UNK
  3. SINTROM [Concomitant]
     Dosage: UNK
     Dates: start: 19840101
  4. BOI K [Concomitant]
     Dosage: UNK

REACTIONS (4)
  - CARDIOMEGALY [None]
  - PLEURAL EFFUSION [None]
  - PULMONARY HYPERTENSION [None]
  - RESPIRATORY FAILURE [None]
